FAERS Safety Report 4327968-6 (Version None)
Quarter: 2004Q1

REPORT INFORMATION
  Report Type: 
  Country: None (occurrence: None)
  Receive Date: 20040325
  Receipt Date: 20040322
  Transmission Date: 20041129
  Serious: Yes (Hospitalization)
  Sender: FDA-Public Use
  Company Number: DL2004052

PATIENT
  Age: 16 Year
  Sex: Female

DRUGS (4)
  1. MIFEPRISTONE TABLETS, 200 MG (DANCO LABS) [Suspect]
     Indication: ABORTION INDUCED
     Dosage: 200 MG, ORAL
     Route: 048
     Dates: start: 20040220
  2. MISOPROSTOL [Suspect]
     Dosage: 800 MCG, VAGINAL
     Route: 067
     Dates: start: 20040221
  3. SYNTHROID [Concomitant]
  4. LEXAPRO [Concomitant]

REACTIONS (5)
  - MENORRHAGIA [None]
  - PYREXIA [None]
  - STREPTOCOCCAL INFECTION [None]
  - STREPTOCOCCAL SEPSIS [None]
  - VAGINAL INFECTION [None]
